FAERS Safety Report 15760238 (Version 1)
Quarter: 2018Q4

REPORT INFORMATION
  Report Type: Spontaneous
  Country: HR (occurrence: HR)
  Receive Date: 20181226
  Receipt Date: 20181226
  Transmission Date: 20190205
  Serious: Yes (Death, Other)
  Sender: FDA-Public Use
  Company Number: HR-PFIZER INC-2018523608

PATIENT
  Age: 60 Year
  Sex: Female

DRUGS (2)
  1. IMBRUVICA [Suspect]
     Active Substance: IBRUTINIB
     Indication: MANTLE CELL LYMPHOMA
     Dosage: 560 MG, UNK
     Route: 048
     Dates: start: 20181029, end: 20181112
  2. FRAGMIN [Suspect]
     Active Substance: DALTEPARIN SODIUM
     Indication: PORTAL VEIN THROMBOSIS
     Dosage: UNK
     Route: 065

REACTIONS (2)
  - Haemorrhagic ascites [Fatal]
  - Acute kidney injury [Fatal]

NARRATIVE: CASE EVENT DATE: 201811
